FAERS Safety Report 6593634-X (Version None)
Quarter: 2010Q1

REPORT INFORMATION
  Report Type: 
  Country: None (occurrence: None)
  Receive Date: 20100222
  Receipt Date: 20090922
  Transmission Date: 20100710
  Serious: No
  Sender: FDA-Public Use
  Company Number: US-BRISTOL-MYERS SQUIBB COMPANY-14789515

PATIENT
  Sex: Female

DRUGS (1)
  1. ORENCIA [Suspect]
     Dosage: TAKEN ONE DOSE

REACTIONS (3)
  - PAIN IN EXTREMITY [None]
  - PYREXIA [None]
  - THROAT TIGHTNESS [None]
